FAERS Safety Report 19458510 (Version 1)
Quarter: 2021Q2

REPORT INFORMATION
  Report Type: Spontaneous
  Country: US (occurrence: US)
  Receive Date: 20210624
  Receipt Date: 20210624
  Transmission Date: 20210717
  Serious: Yes (Hospitalization)
  Sender: FDA-Public Use
  Company Number: US-MYLANLABS-2021M1037459

PATIENT
  Sex: Female

DRUGS (57)
  1. CLOZAPINE. [Suspect]
     Active Substance: CLOZAPINE
     Indication: DEPRESSION
     Dosage: INITIAL DOSE NOT STATED
     Route: 065
  2. METHYLPHENIDATE. [Suspect]
     Active Substance: METHYLPHENIDATE
     Indication: SUICIDAL IDEATION
  3. SERTRALINE [Suspect]
     Active Substance: SERTRALINE HYDROCHLORIDE
     Indication: INTENTIONAL SELF-INJURY
  4. DULOXETINE. [Suspect]
     Active Substance: DULOXETINE
     Indication: DEPRESSION
     Dosage: 90 MILLIGRAM, QD
     Route: 065
  5. DULOXETINE. [Suspect]
     Active Substance: DULOXETINE
     Indication: INTENTIONAL SELF-INJURY
  6. BUPROPION. [Suspect]
     Active Substance: BUPROPION
     Indication: DEPRESSION
     Dosage: 450 MILLIGRAM, QD
     Route: 065
  7. MIRTAZAPINE. [Suspect]
     Active Substance: MIRTAZAPINE
     Indication: INTENTIONAL SELF-INJURY
  8. LORAZEPAM. [Suspect]
     Active Substance: LORAZEPAM
     Indication: INTENTIONAL SELF-INJURY
     Dosage: UNK
     Route: 065
  9. NORTRIPTYLINE [Suspect]
     Active Substance: NORTRIPTYLINE
     Indication: INTENTIONAL SELF-INJURY
  10. KETAMINE [Suspect]
     Active Substance: KETAMINE
     Indication: INTENTIONAL SELF-INJURY
  11. LEVOMILNACIPRAN [Suspect]
     Active Substance: LEVOMILNACIPRAN
     Indication: DEPRESSION
     Dosage: 120 MILLIGRAM, QD
     Route: 065
  12. QUETIAPINE. [Suspect]
     Active Substance: QUETIAPINE
     Indication: INTENTIONAL SELF-INJURY
  13. FLUOXETINE [Suspect]
     Active Substance: FLUOXETINE HYDROCHLORIDE
     Indication: DEPRESSION
     Dosage: 60 MILLIGRAM, QD
     Route: 065
  14. SERTRALINE [Suspect]
     Active Substance: SERTRALINE HYDROCHLORIDE
     Indication: SUICIDAL IDEATION
  15. BUPROPION. [Suspect]
     Active Substance: BUPROPION
     Indication: INTENTIONAL SELF-INJURY
  16. BUPROPION. [Suspect]
     Active Substance: BUPROPION
     Indication: SUICIDAL IDEATION
  17. LAMOTRIGINE. [Suspect]
     Active Substance: LAMOTRIGINE
     Indication: DEPRESSION
     Dosage: 150 MILLIGRAM, QD
     Route: 065
  18. LAMOTRIGINE. [Suspect]
     Active Substance: LAMOTRIGINE
     Indication: SUICIDAL IDEATION
  19. KETAMINE [Suspect]
     Active Substance: KETAMINE
     Indication: DEPRESSION
     Dosage: 90 HOUR INFUSION
     Route: 065
  20. KETAMINE [Suspect]
     Active Substance: KETAMINE
     Indication: SUICIDAL IDEATION
  21. QUETIAPINE. [Suspect]
     Active Substance: QUETIAPINE
     Indication: SUICIDAL IDEATION
  22. VENLAFAXINE [Suspect]
     Active Substance: VENLAFAXINE HYDROCHLORIDE
     Indication: SUICIDAL IDEATION
  23. LITHIUM. [Suspect]
     Active Substance: LITHIUM
     Indication: INTENTIONAL SELF-INJURY
  24. ARIPIPRAZOLE. [Suspect]
     Active Substance: ARIPIPRAZOLE
     Indication: INTENTIONAL SELF-INJURY
     Dosage: 5 MILLIGRAM, QD
     Route: 065
  25. ARIPIPRAZOLE. [Suspect]
     Active Substance: ARIPIPRAZOLE
     Indication: DEPRESSION
  26. ARIPIPRAZOLE. [Suspect]
     Active Substance: ARIPIPRAZOLE
     Indication: SUICIDAL IDEATION
  27. PHENELZINE [Suspect]
     Active Substance: PHENELZINE
     Indication: INTENTIONAL SELF-INJURY
  28. LEVOMILNACIPRAN [Suspect]
     Active Substance: LEVOMILNACIPRAN
     Indication: INTENTIONAL SELF-INJURY
  29. MIRTAZAPINE. [Suspect]
     Active Substance: MIRTAZAPINE
     Indication: DEPRESSION
     Dosage: 30 MILLIGRAM, QD
     Route: 065
  30. LAMOTRIGINE. [Suspect]
     Active Substance: LAMOTRIGINE
     Indication: INTENTIONAL SELF-INJURY
  31. VILAZODONE [Suspect]
     Active Substance: VILAZODONE
     Indication: DEPRESSION
     Dosage: 40 MILLIGRAM, QD
     Route: 065
  32. CLOZAPINE. [Suspect]
     Active Substance: CLOZAPINE
     Indication: INTENTIONAL SELF-INJURY
     Dosage: 350 MILLIGRAM, QD
     Route: 065
  33. SERTRALINE [Suspect]
     Active Substance: SERTRALINE HYDROCHLORIDE
     Indication: DEPRESSION
     Dosage: 150 MILLIGRAM, QD
     Route: 065
  34. MIRTAZAPINE. [Suspect]
     Active Substance: MIRTAZAPINE
     Indication: SUICIDAL IDEATION
  35. LITHIUM. [Suspect]
     Active Substance: LITHIUM
     Indication: DEPRESSION
     Dosage: 900 MILLIGRAM, QD
     Route: 065
  36. NORTRIPTYLINE [Suspect]
     Active Substance: NORTRIPTYLINE
     Indication: SUICIDAL IDEATION
  37. PHENELZINE [Suspect]
     Active Substance: PHENELZINE
     Indication: DEPRESSION
     Dosage: 45 MILLIGRAM, QD OVER 1 MONTH
     Route: 065
  38. PHENELZINE [Suspect]
     Active Substance: PHENELZINE
     Indication: SUICIDAL IDEATION
  39. VILAZODONE [Suspect]
     Active Substance: VILAZODONE
     Indication: INTENTIONAL SELF-INJURY
  40. QUETIAPINE. [Suspect]
     Active Substance: QUETIAPINE
     Indication: DEPRESSION
     Dosage: 300 MILLIGRAM, QD OVER 1 MONTH
     Route: 065
  41. FLUOXETINE [Suspect]
     Active Substance: FLUOXETINE HYDROCHLORIDE
     Indication: SUICIDAL IDEATION
  42. VENLAFAXINE [Suspect]
     Active Substance: VENLAFAXINE HYDROCHLORIDE
     Indication: DEPRESSION
     Dosage: 225 MILLIGRAM, QD
     Route: 065
  43. VENLAFAXINE [Suspect]
     Active Substance: VENLAFAXINE HYDROCHLORIDE
     Indication: INTENTIONAL SELF-INJURY
  44. LEVOTHYROXINE. [Suspect]
     Active Substance: LEVOTHYROXINE
     Indication: SUICIDAL IDEATION
  45. OLANZAPINE. [Suspect]
     Active Substance: OLANZAPINE
     Indication: INTENTIONAL SELF-INJURY
     Dosage: UNK
     Route: 065
  46. NORTRIPTYLINE [Suspect]
     Active Substance: NORTRIPTYLINE
     Indication: DEPRESSION
     Dosage: 150 MILLIGRAM, QD OVER 1 MONTH
     Route: 065
  47. NALTREXONE [Suspect]
     Active Substance: NALTREXONE
     Indication: INTENTIONAL SELF-INJURY
     Dosage: UNK
     Route: 065
  48. METHYLPHENIDATE. [Suspect]
     Active Substance: METHYLPHENIDATE
     Indication: INTENTIONAL SELF-INJURY
  49. DULOXETINE. [Suspect]
     Active Substance: DULOXETINE
     Indication: SUICIDAL IDEATION
  50. LEVOTHYROXINE. [Suspect]
     Active Substance: LEVOTHYROXINE
     Indication: INTENTIONAL SELF-INJURY
  51. LEVOMILNACIPRAN [Suspect]
     Active Substance: LEVOMILNACIPRAN
     Indication: SUICIDAL IDEATION
  52. VILAZODONE [Suspect]
     Active Substance: VILAZODONE
     Indication: SUICIDAL IDEATION
  53. CLOZAPINE. [Suspect]
     Active Substance: CLOZAPINE
     Indication: SUICIDAL IDEATION
  54. METHYLPHENIDATE. [Suspect]
     Active Substance: METHYLPHENIDATE
     Indication: DEPRESSION
     Dosage: 10 MILLIGRAM, QD OVER 1 MONTH
     Route: 065
  55. FLUOXETINE [Suspect]
     Active Substance: FLUOXETINE HYDROCHLORIDE
     Indication: INTENTIONAL SELF-INJURY
     Dosage: 20 MILLIGRAM, QD
     Route: 065
  56. LITHIUM. [Suspect]
     Active Substance: LITHIUM
     Indication: SUICIDAL IDEATION
  57. LEVOTHYROXINE. [Suspect]
     Active Substance: LEVOTHYROXINE
     Indication: DEPRESSION
     Dosage: 65 MICROGRAM, QD
     Route: 065

REACTIONS (2)
  - Drug ineffective [Unknown]
  - Off label use [Unknown]
